FAERS Safety Report 15101325 (Version 5)
Quarter: 2018Q4

REPORT INFORMATION
  Report Type: Report from Study
  Country: DE (occurrence: DE)
  Receive Date: 20180703
  Receipt Date: 20181006
  Transmission Date: 20190204
  Serious: Yes (Hospitalization, Congenital Anomaly, Other)
  Sender: FDA-Public Use
  Company Number: DE-AUROBINDO-AUR-APL-2018-033606

PATIENT
  Age: 9 Month
  Sex: Male
  Weight: 2.8 kg

DRUGS (8)
  1. PRAVASTATIN. [Suspect]
     Active Substance: PRAVASTATIN
     Indication: PRODUCT USED FOR UNKNOWN INDICATION
     Dosage: UNK, 0-8 WEEKS
     Route: 064
  2. RAMIPRIL. [Suspect]
     Active Substance: RAMIPRIL
     Indication: PRODUCT USED FOR UNKNOWN INDICATION
     Dosage: EXPOSURE DURATION: 0-8 WEEKS
     Route: 064
  3. METOPROLOL. [Suspect]
     Active Substance: METOPROLOL
     Dosage: VERMUTLICH BIS ZUR ENTBINDUNG
     Route: 064
  4. CLOPIDOGREL [Suspect]
     Active Substance: CLOPIDOGREL BISULFATE
     Indication: PRODUCT USED FOR UNKNOWN INDICATION
     Dosage: 75 MILLIGRAM, ONCE A DAY, 1 {TRIMESTER}
     Route: 064
  5. METOPROLOL. [Suspect]
     Active Substance: METOPROLOL
     Indication: PRODUCT USED FOR UNKNOWN INDICATION
     Dosage: UNK, FROM 8.1. GESTATIONAL WEEK PRESUMABLY UNTIL DELIVERY FORM:UNKNOWN
     Route: 064
  6. ACETYLSALICYLIC ACID TABLET [Suspect]
     Active Substance: ASPIRIN
     Indication: PRODUCT USED FOR UNKNOWN INDICATION
     Dosage: 100 MILLIGRAM, ONCE A DAY, TRIMESTER: LONG TERM EXPOSURE
     Route: 064
  7. DIHYDRALAZINE [Suspect]
     Active Substance: DIHYDRALAZINE
     Indication: PRODUCT USED FOR UNKNOWN INDICATION
     Dosage: UNK, TRIMESTER: LONG TERM EXPOSURE
     Route: 064
  8. DIHYDRALAZINE [Suspect]
     Active Substance: DIHYDRALAZINE
     Dosage: UNK
     Route: 064

REACTIONS (18)
  - Patent ductus arteriosus [Unknown]
  - Seizure [Unknown]
  - Coarctation of the aorta [Recovered/Resolved with Sequelae]
  - Congenital aortic anomaly [Unknown]
  - Congenital aortic valve stenosis [Recovered/Resolved with Sequelae]
  - Aorta hypoplasia [Recovered/Resolved with Sequelae]
  - Mitral valve hypoplasia [Recovered/Resolved with Sequelae]
  - Atrial septal defect [Recovered/Resolved with Sequelae]
  - Heart disease congenital [Unknown]
  - Surgery [Unknown]
  - Congenital aortic stenosis [Unknown]
  - Shone complex [Unknown]
  - Ventricular septal defect [Unknown]
  - Supravalvular aortic stenosis [Unknown]
  - Mitral valve disease [Unknown]
  - Congenital heart valve disorder [Unknown]
  - Foetal exposure during pregnancy [Unknown]
  - Off label use [Unknown]

NARRATIVE: CASE EVENT DATE: 2005
